FAERS Safety Report 17446010 (Version 3)
Quarter: 2021Q3

REPORT INFORMATION
  Report Type: Spontaneous
  Country: IT (occurrence: IT)
  Receive Date: 20200221
  Receipt Date: 20210720
  Transmission Date: 20211014
  Serious: Yes (Life-Threatening, Hospitalization, Other)
  Sender: FDA-Public Use
  Company Number: IT-MYLANLABS-2020M1018782

PATIENT
  Age: 63 Year
  Sex: Male

DRUGS (4)
  1. SALAZOPYRIN [Suspect]
     Active Substance: SULFASALAZINE
     Indication: RHEUMATOID ARTHRITIS
     Dosage: UNK
     Route: 048
  2. MESALAZINE [Suspect]
     Active Substance: MESALAMINE
     Indication: EVIDENCE BASED TREATMENT
  3. MESALAZINE [Suspect]
     Active Substance: MESALAMINE
     Indication: COLITIS ULCERATIVE
  4. MESALAZINE [Suspect]
     Active Substance: MESALAMINE
     Indication: COLITIS
     Dosage: 800 MG, TID (THREE TIMES A DAY)

REACTIONS (12)
  - Drug reaction with eosinophilia and systemic symptoms [Recovered/Resolved]
  - Serum ferritin increased [Recovered/Resolved]
  - Varicella zoster virus infection [Recovered/Resolved]
  - Hepatic steatosis [Recovered/Resolved]
  - Cholestasis [Recovered/Resolved]
  - Acute kidney injury [Recovered/Resolved]
  - Multiple organ dysfunction syndrome [Recovered/Resolved]
  - Helicobacter gastritis [Recovered/Resolved]
  - Herpes zoster reactivation [Recovered/Resolved]
  - Colitis ulcerative [Recovered/Resolved]
  - Thrombocytopenia [Recovered/Resolved]
  - Infection reactivation [Recovered/Resolved]
